FAERS Safety Report 13001296 (Version 4)
Quarter: 2019Q1

REPORT INFORMATION
  Report Type: Spontaneous
  Country: US (occurrence: US)
  Receive Date: 20161206
  Receipt Date: 20190307
  Transmission Date: 20190417
  Serious: No
  Sender: FDA-Public Use
  Company Number: US-PFIZER INC-2016561030

PATIENT
  Age: 51 Year
  Sex: Female

DRUGS (1)
  1. SERTRALINE HCL [Suspect]
     Active Substance: SERTRALINE HYDROCHLORIDE
     Indication: NERVE INJURY
     Dosage: UNK

REACTIONS (11)
  - Insomnia [Unknown]
  - Eating disorder [Unknown]
  - Thinking abnormal [Unknown]
  - Panic disorder [Unknown]
  - Candida infection [Unknown]
  - Mobility decreased [Unknown]
  - Drug ineffective for unapproved indication [Unknown]
  - Paraesthesia [Unknown]
  - Malaise [Unknown]
  - Feeling abnormal [Unknown]
  - Disturbance in attention [Unknown]
